FAERS Safety Report 21682761 (Version 1)
Quarter: 2022Q4

REPORT INFORMATION
  Report Type: Spontaneous
  Country: CN (occurrence: CN)
  Receive Date: 20221205
  Receipt Date: 20221205
  Transmission Date: 20230113
  Serious: Yes (Hospitalization, Other)
  Sender: FDA-Public Use
  Company Number: CN-009507513-2212CHN000124

PATIENT
  Age: 74 Year
  Sex: Female
  Weight: 36 kg

DRUGS (2)
  1. CILASTATIN SODIUM\IMIPENEM [Suspect]
     Active Substance: CILASTATIN SODIUM\IMIPENEM
     Indication: Infection
     Dosage: 1G, Q8H (ALSO REPORTED AS ^18/5 DAYS^)
     Route: 041
     Dates: start: 20221102, end: 20221107
  2. SODIUM CHLORIDE [Concomitant]
     Active Substance: SODIUM CHLORIDE
     Indication: Anti-infective therapy
     Dosage: 100ML, Q8H
     Dates: start: 20221102, end: 20221107

REACTIONS (4)
  - Dementia [Recovering/Resolving]
  - Hallucination [Recovering/Resolving]
  - Agitation [Recovering/Resolving]
  - Mental disorder [Unknown]

NARRATIVE: CASE EVENT DATE: 20221107
